FAERS Safety Report 19491917 (Version 4)
Quarter: 2022Q1

REPORT INFORMATION
  Report Type: Other
  Country: JP (occurrence: JP)
  Receive Date: 20210705
  Receipt Date: 20220318
  Transmission Date: 20220423
  Serious: Yes (Hospitalization)
  Sender: FDA-Public Use
  Company Number: JP-CHUGAI-A2021004720AA

PATIENT
  Age: 70 Year
  Sex: Male
  Weight: 44 kg

DRUGS (6)
  1. ATEZOLIZUMAB [Suspect]
     Active Substance: ATEZOLIZUMAB
     Indication: Lung adenocarcinoma
     Dosage: 1200MG,1 TIMES IN
     Route: 041
     Dates: start: 20201201, end: 20201222
  2. CARBOPLATIN [Suspect]
     Active Substance: CARBOPLATIN
     Indication: Lung adenocarcinoma
     Dosage: 320 MILLIGRAM
     Route: 041
     Dates: start: 20201201, end: 202012
  3. CARBOPLATIN [Suspect]
     Active Substance: CARBOPLATIN
     Dosage: 320 MILLIGRAM
     Route: 041
     Dates: start: 202012, end: 20201222
  4. PEMETREXED DISODIUM [Suspect]
     Active Substance: PEMETREXED DISODIUM
     Indication: Lung adenocarcinoma
     Dosage: 680 MILLIGRAM
     Route: 041
     Dates: start: 20201201, end: 202012
  5. PEMETREXED DISODIUM [Suspect]
     Active Substance: PEMETREXED DISODIUM
     Dosage: 540 MILLIGRAM, QD?MOST RECENT DOSE RECEIVED ON 22/DEC/2020.
     Route: 041
     Dates: start: 20201222
  6. DEXAMETHASONE [Concomitant]
     Active Substance: DEXAMETHASONE
     Indication: Metastases to central nervous system
     Dosage: 0.5 UNK
     Route: 048

REACTIONS (2)
  - Interstitial lung disease [Recovering/Resolving]
  - Febrile neutropenia [Recovered/Resolved]

NARRATIVE: CASE EVENT DATE: 20201209
